FAERS Safety Report 21452564 (Version 8)
Quarter: 2023Q1

REPORT INFORMATION
  Report Type: Report from Study
  Country: US (occurrence: None)
  Receive Date: 20221013
  Receipt Date: 20230301
  Transmission Date: 20230418
  Serious: Yes (Life-Threatening)
  Sender: FDA-Public Use
  Company Number: US-ROCHE-3195833

PATIENT
  Age: 67 Year
  Sex: Male
  Weight: 98 kg

DRUGS (41)
  1. TOCILIZUMAB [Suspect]
     Active Substance: TOCILIZUMAB
     Indication: Plasma cell myeloma
     Dosage: START AND END DATE OF MOST RECENT DOSE (800 MG) OF STUDY DRUG PRIOR TO AE AND SAE ON 23/MAR/2022 FRO
     Route: 042
     Dates: start: 20220323
  2. CEVOSTAMAB [Suspect]
     Active Substance: CEVOSTAMAB
     Indication: Plasma cell myeloma
     Dosage: START AND END DATE OF MOST RECENT DOSE OF STUDY DRUG PRIOR TO AE AND SAE ON 30/AUG/2022 AT 90 MG FRO
     Route: 042
     Dates: start: 20220322
  3. METFORMIN [Concomitant]
     Active Substance: METFORMIN HYDROCHLORIDE
     Indication: Diabetes mellitus
     Route: 048
     Dates: start: 20200630
  4. PRAMIPEXOLE [Concomitant]
     Active Substance: PRAMIPEXOLE
     Indication: Restless legs syndrome
     Route: 048
     Dates: start: 20220715, end: 20220913
  5. TRULICITY [Concomitant]
     Active Substance: DULAGLUTIDE
     Indication: Type 2 diabetes mellitus
     Route: 058
     Dates: start: 20220715
  6. CEFEPIME [Concomitant]
     Active Substance: CEFEPIME HYDROCHLORIDE
     Indication: Febrile neutropenia
     Route: 042
     Dates: start: 20220907, end: 20220913
  7. ACETAMINOPHEN [Concomitant]
     Active Substance: ACETAMINOPHEN
     Indication: Pyrexia
     Route: 048
     Dates: start: 20220907, end: 20220913
  8. ACYCLOVIR [Concomitant]
     Active Substance: ACYCLOVIR
     Route: 048
     Dates: start: 20220906, end: 20220913
  9. ALLOPURINOL [Concomitant]
     Active Substance: ALLOPURINOL
     Route: 048
     Dates: start: 20220907, end: 20220907
  10. AZITHROMYCIN [Concomitant]
     Active Substance: AZITHROMYCIN
     Indication: Pneumonia
     Route: 048
     Dates: start: 20220907, end: 20220909
  11. ASPIRIN [Concomitant]
     Active Substance: ASPIRIN
     Indication: Cerebral artery embolism
     Route: 048
     Dates: start: 20220907, end: 20220907
  12. ASPIRIN [Concomitant]
     Active Substance: ASPIRIN
     Indication: Cerebral ischaemia
  13. BENZONATATE [Concomitant]
     Active Substance: BENZONATATE
     Indication: Cough
     Route: 048
     Dates: start: 20220908, end: 20220910
  14. DEXTROMETHORPHAN [Concomitant]
     Active Substance: DEXTROMETHORPHAN
     Indication: Cough
     Route: 048
     Dates: start: 20220908, end: 20220911
  15. FENOFIBRATE [Concomitant]
     Active Substance: FENOFIBRATE
     Indication: Hyperlipidaemia
     Route: 048
     Dates: start: 20220906, end: 20220913
  16. FLUTICASONE FUROATE [Concomitant]
     Active Substance: FLUTICASONE FUROATE
     Indication: Asthma
     Dosage: 1 PUFF
     Route: 055
     Dates: start: 20220907, end: 20220913
  17. INSULIN LISPRO [Concomitant]
     Active Substance: INSULIN LISPRO
     Indication: Diabetes mellitus
     Dosage: 1 U
     Route: 058
     Dates: start: 20220908, end: 20220912
  18. INSULIN LISPRO [Concomitant]
     Active Substance: INSULIN LISPRO
     Dosage: 2 U
     Route: 058
     Dates: start: 20220907, end: 20220913
  19. LEVETIRACETAM [Concomitant]
     Active Substance: LEVETIRACETAM
     Route: 048
     Dates: start: 20220906, end: 20220913
  20. MAGNESIUM OXIDE [Concomitant]
     Active Substance: MAGNESIUM OXIDE
     Indication: Prophylaxis
     Route: 048
     Dates: start: 20220907, end: 20220913
  21. PANTOPRAZOLE [Concomitant]
     Active Substance: PANTOPRAZOLE
     Indication: Prophylaxis against gastrointestinal ulcer
     Route: 048
     Dates: start: 20220907, end: 20220913
  22. PROCHLORPERAZINE [Concomitant]
     Active Substance: PROCHLORPERAZINE
     Indication: Prophylaxis of nausea and vomiting
     Route: 048
     Dates: start: 20220909, end: 20220913
  23. ROPINIROLE [Concomitant]
     Active Substance: ROPINIROLE
     Indication: Restless legs syndrome
     Route: 048
     Dates: start: 20220906, end: 20220912
  24. VENLAFAXINE HYDROCHLORIDE [Concomitant]
     Active Substance: VENLAFAXINE HYDROCHLORIDE
     Indication: Anxiety
     Route: 048
     Dates: start: 20220907, end: 20220913
  25. ALBUTEROL [Concomitant]
     Active Substance: ALBUTEROL
     Indication: Dyspnoea
     Route: 055
     Dates: start: 20220909, end: 20220909
  26. CIPROFLOXACIN [Concomitant]
     Active Substance: CIPROFLOXACIN
     Route: 048
     Dates: start: 20220913, end: 20220913
  27. CEFEPIME [Concomitant]
     Active Substance: CEFEPIME HYDROCHLORIDE
     Indication: Sepsis
     Route: 042
     Dates: start: 20220924, end: 20220925
  28. PREDNISONE [Concomitant]
     Active Substance: PREDNISONE
     Indication: Hypoxia
     Route: 048
     Dates: start: 20220925, end: 20220926
  29. VASOPRESSIN [Concomitant]
     Active Substance: VASOPRESSIN
     Indication: Hypotension
  30. AZACITIDINE [Concomitant]
     Active Substance: AZACITIDINE
     Indication: Acute erythroid leukaemia
     Route: 042
     Dates: start: 20221011, end: 20221011
  31. AZACITIDINE [Concomitant]
     Active Substance: AZACITIDINE
     Route: 042
     Dates: start: 20221012, end: 20221012
  32. AZACITIDINE [Concomitant]
     Active Substance: AZACITIDINE
     Route: 042
     Dates: start: 20221006, end: 20221006
  33. LEVOFLOXACIN [Concomitant]
     Active Substance: LEVOFLOXACIN
     Indication: Pneumonia
     Route: 048
     Dates: start: 20220817, end: 20220827
  34. RUXOLITINIB [Concomitant]
     Active Substance: RUXOLITINIB
     Indication: Myelofibrosis
     Route: 048
     Dates: start: 20220926, end: 20220927
  35. RUXOLITINIB [Concomitant]
     Active Substance: RUXOLITINIB
     Route: 048
     Dates: start: 20220928, end: 20221004
  36. RUXOLITINIB [Concomitant]
     Active Substance: RUXOLITINIB
     Route: 048
     Dates: start: 20221004, end: 20221005
  37. RUXOLITINIB [Concomitant]
     Active Substance: RUXOLITINIB
     Route: 045
     Dates: start: 20221008, end: 20221012
  38. RUXOLITINIB [Concomitant]
     Active Substance: RUXOLITINIB
     Route: 048
     Dates: start: 20221012, end: 20221022
  39. RUXOLITINIB [Concomitant]
     Active Substance: RUXOLITINIB
     Route: 048
     Dates: start: 20221001, end: 20221004
  40. ZOLOFT [Concomitant]
     Active Substance: SERTRALINE HYDROCHLORIDE
     Indication: Anxiety
     Route: 048
     Dates: start: 20220907, end: 20220913
  41. ZOLOFT [Concomitant]
     Active Substance: SERTRALINE HYDROCHLORIDE
     Indication: Depression

REACTIONS (2)
  - Haemophagocytic lymphohistiocytosis [Not Recovered/Not Resolved]
  - Acute myeloid leukaemia [Not Recovered/Not Resolved]

NARRATIVE: CASE EVENT DATE: 20221001
